FAERS Safety Report 19633762 (Version 1)
Quarter: 2021Q3

REPORT INFORMATION
  Report Type: Spontaneous
  Country: BR (occurrence: BR)
  Receive Date: 20210729
  Receipt Date: 20210729
  Transmission Date: 20211014
  Serious: Yes (Other)
  Sender: FDA-Public Use
  Company Number: BR-PFIZER INC-2021899471

PATIENT
  Age: 35 Year
  Sex: Female

DRUGS (2)
  1. COMIRNATY [Suspect]
     Active Substance: TOZINAMERAN
     Indication: COVID-19 IMMUNISATION
     Dosage: DOSE NUMBER UNKNOWN, SINGLE
     Dates: start: 20210610, end: 20210610
  2. DEPO?PROVERA [Suspect]
     Active Substance: MEDROXYPROGESTERONE ACETATE
     Dosage: UNK
     Dates: start: 2016, end: 202101

REACTIONS (5)
  - Deep vein thrombosis [Unknown]
  - Dyspnoea [Unknown]
  - Gait disturbance [Unknown]
  - Pulmonary embolism [Unknown]
  - Peripheral swelling [Unknown]

NARRATIVE: CASE EVENT DATE: 2021
